FAERS Safety Report 5082803-6 (Version None)
Quarter: 2006Q3

REPORT INFORMATION
  Report Type: 
  Country: None (occurrence: None)
  Receive Date: 20060816
  Receipt Date: 20060816
  Transmission Date: 20061208
  Serious: No
  Sender: FDA-Public Use
  Company Number: None

PATIENT

DRUGS (1)
  1. SPIRONOLACTONE 25MG TAB [Suspect]
     Indication: DIURETIC THERAPY
     Dosage: 25 MG   1 DAILY
     Dates: start: 20060605

REACTIONS (1)
  - MEDICATION ERROR [None]
